FAERS Safety Report 5570341-3 (Version None)
Quarter: 2007Q4

REPORT INFORMATION
  Report Type: 
  Country: None (occurrence: None)
  Receive Date: 20071221
  Receipt Date: 20071213
  Transmission Date: 20080405
  Serious: Yes (Hospitalization)
  Sender: FDA-Public Use
  Company Number: PHHO2007AT20436

PATIENT
  Age: 62 Year
  Sex: Female
  Weight: 106 kg

DRUGS (2)
  1. CERTICAN [Suspect]
     Indication: TRANSPLANT
  2. MYCOPHENOLIC ACID [Suspect]
     Indication: TRANSPLANT
     Dosage: UNK, UNK
     Route: 048

REACTIONS (2)
  - BLOOD CREATININE INCREASED [None]
  - RHABDOMYOLYSIS [None]
